FAERS Safety Report 24213348 (Version 1)
Quarter: 2024Q3

REPORT INFORMATION
  Report Type: Spontaneous
  Country: US (occurrence: None)
  Receive Date: 20240814
  Receipt Date: 20240814
  Transmission Date: 20241017
  Serious: Yes (unspecified)
  Sender: Public
  Company Number: None

PATIENT
  Age: 81 Year
  Sex: Female
  Weight: 40 kg

DRUGS (2)
  1. PAXLOVID [Suspect]
     Active Substance: NIRMATRELVIR\RITONAVIR
     Dosage: 1 DF DOSAGE FORM TWICE A DAY ORAL
     Route: 048
     Dates: start: 20240730, end: 20240803
  2. LISINOPRIL [Suspect]
     Active Substance: LISINOPRIL
     Dates: start: 20201001

REACTIONS (2)
  - Leukopenia [None]
  - Neutropenia [None]

NARRATIVE: CASE EVENT DATE: 20240803
